FAERS Safety Report 9404788 (Version 1)
Quarter: 2013Q3

REPORT INFORMATION
  Report Type: Report from Study
  Country: US (occurrence: US)
  Receive Date: 20130717
  Receipt Date: 20130717
  Transmission Date: 20140515
  Serious: Yes (Other)
  Sender: FDA-Public Use
  Company Number: US-ASTRAZENECA-2013SE52683

PATIENT
  Sex: Male

DRUGS (1)
  1. SYMBICORT [Suspect]
     Dosage: UNKNOWN DOSE AND FREQUENCY
     Route: 055

REACTIONS (3)
  - Retching [Unknown]
  - Haemoptysis [Unknown]
  - Malaise [Unknown]
